FAERS Safety Report 22711712 (Version 2)
Quarter: 2023Q4

REPORT INFORMATION
  Report Type: Spontaneous
  Country: US (occurrence: US)
  Receive Date: 20230717
  Receipt Date: 20231101
  Transmission Date: 20240110
  Serious: No
  Sender: FDA-Public Use
  Company Number: US-BRISTOL-MYERS SQUIBB COMPANY-2023-100330

PATIENT
  Age: 85 Year
  Sex: Female

DRUGS (1)
  1. POMALYST [Suspect]
     Active Substance: POMALIDOMIDE
     Indication: Immunodeficiency common variable
     Dosage: FREQUENCY: TAKE 1 CAPSULE BY MOUTH EVERY DAY ON DAYS 1-21 EVERY 28 DAYS
     Route: 048
     Dates: start: 20221215

REACTIONS (3)
  - Oral infection [Unknown]
  - Off label use [Unknown]
  - Neuralgia [Unknown]
